FAERS Safety Report 6787733-7 (Version None)
Quarter: 2010Q2

REPORT INFORMATION
  Report Type: 
  Country: None (occurrence: None)
  Receive Date: 20100623
  Receipt Date: 20070828
  Transmission Date: 20101027
  Serious: Yes (Other)
  Sender: FDA-Public Use
  Company Number: US-PFIZER INC-2007068418

PATIENT
  Sex: Female
  Weight: 59.09 kg

DRUGS (2)
  1. DEPO-PROVERA SUSPENSION/INJ [Suspect]
     Indication: CONTRACEPTION
     Dosage: FIRST INJECTION
     Route: 030
     Dates: start: 20050101, end: 20050101
  2. DEPO-PROVERA SUSPENSION/INJ [Suspect]
     Dosage: LAST INJECTION
     Route: 030
     Dates: start: 20070503, end: 20070503

REACTIONS (3)
  - AMENORRHOEA [None]
  - DRUG INEFFECTIVE [None]
  - UNINTENDED PREGNANCY [None]
